FAERS Safety Report 9541994 (Version 1)
Quarter: 2013Q3

REPORT INFORMATION
  Report Type: Spontaneous
  Country: CA (occurrence: CA)
  Receive Date: 20130923
  Receipt Date: 20130923
  Transmission Date: 20140515
  Serious: Yes (Life-Threatening)
  Sender: FDA-Public Use
  Company Number: CA-ASTRAZENECA-2013SE70670

PATIENT
  Age: 60 Year
  Sex: Male
  Weight: 80 kg

DRUGS (8)
  1. ATACAND PLUS [Suspect]
     Dosage: 1 DOSAGE FORM EVERYDAY
     Route: 048
  2. RASILEZ [Suspect]
     Route: 048
  3. CRESTOR [Concomitant]
  4. SEROQUEL [Concomitant]
  5. ASA [Concomitant]
  6. CLONIDINE [Concomitant]
  7. EFFEXOR XR [Concomitant]
  8. TIAZAC [Concomitant]

REACTIONS (4)
  - Acidosis [Recovered/Resolved]
  - Bradycardia [Recovered/Resolved]
  - Hypotension [Recovered/Resolved]
  - Renal failure acute [Recovered/Resolved]
